FAERS Safety Report 8486189-6 (Version None)
Quarter: 2012Q3

REPORT INFORMATION
  Report Type: 
  Country: None (occurrence: None)
  Receive Date: 20120703
  Receipt Date: 20120625
  Transmission Date: 20120928
  Serious: Yes (Other)
  Sender: FDA-Public Use
  Company Number: JP-VERTEX PHARMACEUTICALS INC.-AE-2012-004843

PATIENT
  Sex: Female

DRUGS (20)
  1. TELAVIC (TELAPREVIR) [Suspect]
     Route: 048
     Dates: start: 20120116, end: 20120118
  2. TELAVIC (TELAPREVIR) [Suspect]
     Route: 048
     Dates: start: 20120126, end: 20120201
  3. REBETOL [Concomitant]
     Route: 048
     Dates: start: 20120223, end: 20120225
  4. PEG-INTRON [Concomitant]
     Route: 058
     Dates: start: 20120216, end: 20120229
  5. TELAVIC (TELAPREVIR) [Suspect]
     Route: 048
     Dates: start: 20120123, end: 20120125
  6. TELAVIC (TELAPREVIR) [Suspect]
     Route: 048
     Dates: start: 20120301
  7. REBETOL [Concomitant]
     Route: 048
     Dates: start: 20120112, end: 20120112
  8. REBETOL [Concomitant]
     Route: 048
     Dates: start: 20120114, end: 20120118
  9. PEG-INTRON [Concomitant]
     Route: 058
     Dates: start: 20120301
  10. REBETOL [Concomitant]
     Route: 048
     Dates: start: 20120105, end: 20120111
  11. TELAVIC (TELAPREVIR) [Suspect]
     Route: 048
     Dates: start: 20120223, end: 20120229
  12. REBETOL [Concomitant]
     Route: 048
     Dates: start: 20120216
  13. REBETOL [Concomitant]
     Indication: HEPATITIS C
     Route: 048
     Dates: start: 20111228, end: 20120104
  14. PEG-INTRON [Concomitant]
     Indication: HEPATITIS C
     Route: 058
     Dates: start: 20111228, end: 20120117
  15. NORVASC [Concomitant]
     Indication: HYPERTENSION
     Route: 048
  16. TELAVIC (TELAPREVIR) [Suspect]
     Route: 048
     Dates: start: 20120114, end: 20120115
  17. TELAVIC (TELAPREVIR) [Suspect]
     Route: 048
     Dates: start: 20120216, end: 20120222
  18. TELAVIC (TELAPREVIR) [Suspect]
     Indication: HEPATITIS C
     Route: 048
     Dates: start: 20111228, end: 20120104
  19. TELAVIC (TELAPREVIR) [Suspect]
     Route: 048
     Dates: start: 20120105, end: 20120112
  20. PEG-INTRON [Concomitant]
     Route: 058
     Dates: start: 20120126, end: 20120201

REACTIONS (4)
  - DECREASED APPETITE [None]
  - RASH [None]
  - WHITE BLOOD CELL COUNT DECREASED [None]
  - PRURITUS [None]
